FAERS Safety Report 7592816-8 (Version None)
Quarter: 2011Q3

REPORT INFORMATION
  Report Type: 
  Country: None (occurrence: None)
  Receive Date: 20110706
  Receipt Date: 20110622
  Transmission Date: 20111222
  Serious: Yes (Hospitalization)
  Sender: FDA-Public Use
  Company Number: JP-CELGENEUS-087-21660-11062189

PATIENT
  Age: 51 Year
  Sex: Female
  Weight: 69 kg

DRUGS (4)
  1. ABRAXANE [Suspect]
     Dosage: 180 MILLIGRAM
     Route: 051
     Dates: start: 20110101
  2. ABRAXANE [Suspect]
     Indication: BREAST CANCER METASTATIC
     Dosage: 380 MILLIGRAM
     Route: 051
     Dates: start: 20110309, end: 20110309
  3. ABRAXANE [Suspect]
     Dosage: 300 MILLIGRAM
     Route: 051
     Dates: start: 20110608, end: 20110608
  4. NEUPOGEN [Concomitant]
     Route: 065
     Dates: start: 20110610

REACTIONS (3)
  - FEBRILE NEUTROPENIA [None]
  - STOMATITIS [None]
  - NEUTROPHIL COUNT DECREASED [None]
